FAERS Safety Report 5805816-2 (Version None)
Quarter: 2008Q3

REPORT INFORMATION
  Report Type: 
  Country: None (occurrence: None)
  Receive Date: 20080708
  Receipt Date: 20080623
  Transmission Date: 20090109
  Serious: Yes (Other)
  Sender: FDA-Public Use
  Company Number: 236027J08USA

PATIENT
  Age: 58 Year
  Sex: Female
  Weight: 95.709 kg

DRUGS (10)
  1. REBIF [Suspect]
     Indication: MULTIPLE SCLEROSIS
     Dosage: 44 MCG, 3 IN 1 WEEKS, SUBCUTANEOUS
     Route: 058
     Dates: start: 20030623
  2. ALEVE (CAPLET) [Concomitant]
  3. IMODIUM [Concomitant]
  4. MONOPRIL [Concomitant]
  5. NORVASC [Concomitant]
  6. ASPIRIN [Concomitant]
  7. EFFEXOR [Concomitant]
  8. UNSPECIFIED ANTIBIOTICS (ANTIINFECTIVES) [Concomitant]
  9. ZITHROMAX [Concomitant]
  10. CIPRO [Concomitant]

REACTIONS (10)
  - BILE DUCT OBSTRUCTION [None]
  - CHOLELITHIASIS [None]
  - DIABETES MELLITUS [None]
  - HYPERTHYROIDISM [None]
  - INCISION SITE COMPLICATION [None]
  - INCISION SITE INFECTION [None]
  - STAPHYLOCOCCAL INFECTION [None]
  - SWELLING [None]
  - UPPER RESPIRATORY TRACT INFECTION [None]
  - WEIGHT INCREASED [None]
